FAERS Safety Report 7664363-6 (Version None)
Quarter: 2011Q3

REPORT INFORMATION
  Report Type: 
  Country: None (occurrence: None)
  Receive Date: 20110806
  Receipt Date: 20110121
  Transmission Date: 20111222
  Serious: No
  Sender: FDA-Public Use
  Company Number: US-ABBOTT-11P-163-0699741-00

PATIENT
  Sex: Female
  Weight: 69.462 kg

DRUGS (6)
  1. NIASPAN [Suspect]
     Indication: ARTERIOSCLEROSIS
  2. NIASPAN [Suspect]
     Indication: LOW DENSITY LIPOPROTEIN INCREASED
     Dosage: 500MG AT BEDTIME
     Dates: start: 20110119
  3. SIMVASTATIN [Concomitant]
     Indication: PRODUCT USED FOR UNKNOWN INDICATION
  4. ASPIRIN [Concomitant]
     Indication: PRODUCT USED FOR UNKNOWN INDICATION
  5. PLAVIX [Concomitant]
     Indication: PRODUCT USED FOR UNKNOWN INDICATION
  6. LOVAZA [Concomitant]
     Indication: PRODUCT USED FOR UNKNOWN INDICATION

REACTIONS (5)
  - HYPERHIDROSIS [None]
  - TREMOR [None]
  - NAUSEA [None]
  - BLOOD PRESSURE FLUCTUATION [None]
  - HEART RATE INCREASED [None]
